FAERS Safety Report 11183316 (Version 1)
Quarter: 2015Q2

REPORT INFORMATION
  Report Type: Spontaneous
  Country: US (occurrence: US)
  Receive Date: 20150612
  Receipt Date: 20150612
  Transmission Date: 20150821
  Serious: No
  Sender: FDA-Public Use
  Company Number: US-CELGENEUS-USA-2015044431

PATIENT
  Age: 76 Year
  Sex: Male
  Weight: 76.27 kg

DRUGS (5)
  1. FLOMAX [Concomitant]
     Active Substance: TAMSULOSIN HYDROCHLORIDE
     Indication: PRODUCT USED FOR UNKNOWN INDICATION
     Route: 065
  2. MULTIVITAMINS [Concomitant]
     Active Substance: VITAMINS
     Indication: PRODUCT USED FOR UNKNOWN INDICATION
     Route: 065
  3. PRAVASTATIN [Concomitant]
     Active Substance: PRAVASTATIN\PRAVASTATIN SODIUM
     Indication: BLOOD CHOLESTEROL
     Route: 065
  4. TRICOR [Concomitant]
     Active Substance: FENOFIBRATE
     Indication: DYSLIPIDAEMIA
     Route: 065
  5. OTEZLA [Suspect]
     Active Substance: APREMILAST
     Indication: PSORIASIS
     Dosage: 60 MILLIGRAM
     Route: 048
     Dates: start: 201503, end: 20150414

REACTIONS (3)
  - Headache [Not Recovered/Not Resolved]
  - Diarrhoea [Not Recovered/Not Resolved]
  - Sinusitis [Not Recovered/Not Resolved]

NARRATIVE: CASE EVENT DATE: 201503
